FAERS Safety Report 6817072-7 (Version None)
Quarter: 2010Q3

REPORT INFORMATION
  Report Type: 
  Country: None (occurrence: None)
  Receive Date: 20100706
  Receipt Date: 20090721
  Transmission Date: 20110219
  Serious: Yes (Other)
  Sender: FDA-Public Use
  Company Number: US-ASTRAZENECA-2007UW12230

PATIENT
  Age: 38 Year
  Sex: Male
  Weight: 83 kg

DRUGS (10)
  1. SEROQUEL [Suspect]
     Indication: SLEEP DISORDER
     Route: 048
     Dates: start: 20050705, end: 20050801
  2. TOPROL-XL [Concomitant]
     Dates: start: 20060721
  3. ZOLOFT [Concomitant]
     Dosage: 50-100 MG
     Dates: start: 20030613
  4. ZOLOFT [Concomitant]
     Dates: start: 20060721
  5. DIOVAN [Concomitant]
     Dates: start: 20060721
  6. CYMBALTA [Concomitant]
     Indication: ANXIETY
     Dosage: 30-60 MG
     Dates: start: 20060314
  7. CYMBALTA [Concomitant]
     Indication: DEPRESSION
     Dosage: 30-60 MG
     Dates: start: 20060314
  8. PREDNISONE TAB [Concomitant]
     Dates: start: 20050620
  9. ALPRAZOLAM [Concomitant]
     Dates: start: 20050513
  10. BUSPIRONE HCL [Concomitant]
     Dates: start: 20050706

REACTIONS (3)
  - DIABETIC NEUROPATHY [None]
  - NEUROPATHY PERIPHERAL [None]
  - TYPE 2 DIABETES MELLITUS [None]
